FAERS Safety Report 4999076-2 (Version None)
Quarter: 2006Q2

REPORT INFORMATION
  Report Type: 
  Country: None (occurrence: None)
  Receive Date: 20060509
  Receipt Date: 20060418
  Transmission Date: 20061013
  Serious: Yes (Hospitalization, Other)
  Sender: FDA-Public Use
  Company Number: US200604002907

PATIENT
  Sex: Male

DRUGS (6)
  1. HUMULIN N [Suspect]
     Dosage: SEE IMAGE
  2. HUMULIN R [Suspect]
     Dosage: SEE IMAGE
  3. LASIX [Concomitant]
  4. AMARYL /SWE/ (GLIMEPIRIDE) [Concomitant]
  5. GLUCOPHAGE ^UNS^ (METFORMIN HYDROCHLORIDE) [Concomitant]
  6. AVANDIA [Concomitant]

REACTIONS (5)
  - BLOOD GLUCOSE DECREASED [None]
  - BLOOD GLUCOSE INCREASED [None]
  - RENAL IMPAIRMENT [None]
  - STOMACH DISCOMFORT [None]
  - TREMOR [None]
